FAERS Safety Report 16059846 (Version 1)
Quarter: 2019Q2

REPORT INFORMATION
  Report Type: Spontaneous
  Country: US (occurrence: US)
  Receive Date: 20190311
  Receipt Date: 20190311
  Transmission Date: 20190711
  Serious: Yes (Hospitalization)
  Sender: FDA-Public Use
  Company Number: None

PATIENT
  Sex: Male

DRUGS (13)
  1. METHOTREXATE. [Concomitant]
     Active Substance: METHOTREXATE
  2. ZETIA [Concomitant]
     Active Substance: EZETIMIBE
  3. CLOPIDOGREL [Concomitant]
     Active Substance: CLOPIDOGREL BISULFATE
  4. BIOSPROL [Concomitant]
  5. ESOMEPRA [Concomitant]
     Active Substance: ESOMEPRAZOLE
  6. ISOSORB [Concomitant]
  7. HUMIRA [Suspect]
     Active Substance: ADALIMUMAB
     Indication: RHEUMATOID ARTHRITIS
     Dosage: ?          OTHER FREQUENCY:EVERY TWO WEEKS;?
     Route: 058
     Dates: start: 20170131
  8. ROSUVASTATIN. [Concomitant]
     Active Substance: ROSUVASTATIN
  9. XARELTO [Concomitant]
     Active Substance: RIVAROXABAN
  10. ALBUTEROL. [Concomitant]
     Active Substance: ALBUTEROL
  11. BREO ELLIPTA [Concomitant]
     Active Substance: FLUTICASONE FUROATE\VILANTEROL TRIFENATATE
  12. FUROSEMIDE. [Concomitant]
     Active Substance: FUROSEMIDE
  13. INCRUSE ELLIPTA [Concomitant]
     Active Substance: UMECLIDINIUM BROMIDE

REACTIONS (2)
  - Fall [None]
  - Spinal fracture [None]
